FAERS Safety Report 9493796 (Version 1)
Quarter: 2013Q3

REPORT INFORMATION
  Report Type: Spontaneous
  Country: IT (occurrence: IT)
  Receive Date: 20130902
  Receipt Date: 20130902
  Transmission Date: 20140515
  Serious: Yes (Other)
  Sender: FDA-Public Use
  Company Number: IT-MYLANLABS-2013S1018902

PATIENT
  Age: 55 Year
  Sex: Male

DRUGS (6)
  1. TACROLIMUS [Suspect]
     Indication: ACCIDENTAL OVERDOSE
     Dosage: 12MG/DAY INSTEAD OF PRESCRIBED 4MG/DAY
     Route: 065
  2. TACROLIMUS [Suspect]
     Indication: IMMUNOSUPPRESSANT DRUG THERAPY
     Dosage: 12MG/DAY INSTEAD OF PRESCRIBED 4MG/DAY
     Route: 065
  3. TACROLIMUS [Suspect]
     Indication: ACCIDENTAL OVERDOSE
     Dosage: 4MG/DAY
     Route: 065
  4. TACROLIMUS [Suspect]
     Indication: IMMUNOSUPPRESSANT DRUG THERAPY
     Dosage: 4MG/DAY
     Route: 065
  5. MYCOPHENOLIC ACID [Concomitant]
     Indication: IMMUNOSUPPRESSANT DRUG THERAPY
     Dosage: 440MG/DAY
     Route: 065
  6. PREDNISONE [Concomitant]
     Indication: IMMUNOSUPPRESSANT DRUG THERAPY
     Dosage: 15MG/DAY
     Route: 065

REACTIONS (5)
  - Accidental overdose [Recovered/Resolved]
  - Self injurious behaviour [Recovered/Resolved]
  - Mental status changes [Recovered/Resolved]
  - Aggression [Recovered/Resolved]
  - Impulsive behaviour [Recovered/Resolved]
